FAERS Safety Report 14379781 (Version 10)
Quarter: 2023Q4

REPORT INFORMATION
  Report Type: Spontaneous
  Country: CZ (occurrence: CZ)
  Receive Date: 20180112
  Receipt Date: 20231129
  Transmission Date: 20240109
  Serious: Yes (Life-Threatening, Hospitalization, Disabling, Other)
  Sender: FDA-Public Use
  Company Number: CZ-UCBSA-2017052298

PATIENT
  Age: 51 Year
  Sex: Female

DRUGS (36)
  1. ACETAMINOPHEN\TRAMADOL [Interacting]
     Active Substance: ACETAMINOPHEN\TRAMADOL
     Indication: Product used for unknown indication
     Dosage: UNK
     Route: 065
  2. TRAMADOL [Interacting]
     Active Substance: TRAMADOL\TRAMADOL HYDROCHLORIDE
     Indication: Pain
     Dosage: UNK
     Route: 048
  3. TRAMADOL [Interacting]
     Active Substance: TRAMADOL\TRAMADOL HYDROCHLORIDE
     Indication: Analgesic therapy
     Dosage: 50 MG, UNK
     Route: 065
  4. TRAMADOL [Interacting]
     Active Substance: TRAMADOL\TRAMADOL HYDROCHLORIDE
     Dosage: 300 MILLIGRAM, QD
     Route: 065
  5. LEVOFLOXACIN [Interacting]
     Active Substance: LEVOFLOXACIN
     Indication: Antibiotic therapy
     Dosage: UNK
     Route: 065
  6. TRAZODONE [Interacting]
     Active Substance: TRAZODONE HYDROCHLORIDE
     Indication: Psychiatric symptom
     Dosage: 300 MG, QD
     Route: 065
  7. TRAZODONE [Interacting]
     Active Substance: TRAZODONE HYDROCHLORIDE
     Indication: Mental disorder
  8. PAROXETINE [Interacting]
     Active Substance: PAROXETINE
     Indication: Psychiatric symptom
     Dosage: 60 MG, QD
     Route: 048
  9. PAROXETINE [Interacting]
     Active Substance: PAROXETINE
     Indication: Mental disorder
  10. HYDROXYZINE [Interacting]
     Active Substance: HYDROXYZINE HYDROCHLORIDE
     Indication: Product used for unknown indication
     Dosage: UNK
     Route: 065
  11. HYDROCORTISONE\PRAMOXINE [Interacting]
     Active Substance: HYDROCORTISONE\PRAMOXINE
     Indication: Product used for unknown indication
     Dosage: UNK
     Route: 065
  12. ACETAMINOPHEN [Interacting]
     Active Substance: ACETAMINOPHEN
     Indication: Pyrexia
     Dosage: 4 GRAM, QD
     Route: 065
  13. CODEINE [Interacting]
     Active Substance: CODEINE
     Indication: Pain
     Dosage: UNK
     Route: 048
  14. CODEINE [Interacting]
     Active Substance: CODEINE
     Dosage: UNK
     Route: 065
  15. METOCLOPRAMIDE [Interacting]
     Active Substance: METOCLOPRAMIDE
     Indication: Product used for unknown indication
     Dosage: UNK
     Route: 065
  16. SUFENTANIL [Interacting]
     Active Substance: SUFENTANIL
     Indication: Sedation
     Dosage: 10 MICROGRAM, QH
     Route: 065
  17. CISATRACURIUM [Concomitant]
     Active Substance: CISATRACURIUM
     Indication: Product used for unknown indication
     Dosage: 20 MILLIGRAM
     Route: 065
  18. BUDESONIDE\FORMOTEROL FUMARATE [Concomitant]
     Active Substance: BUDESONIDE\FORMOTEROL FUMARATE
     Indication: Asthma
     Dosage: 160/4.5 MG
     Route: 065
  19. NOREPINEPHRINE [Concomitant]
     Active Substance: NOREPINEPHRINE
     Indication: Product used for unknown indication
     Dosage: UNK
     Route: 065
  20. NOREPINEPHRINE [Concomitant]
     Active Substance: NOREPINEPHRINE
     Indication: Product used for unknown indication
  21. ESMOLOL [Concomitant]
     Active Substance: ESMOLOL HYDROCHLORIDE
     Indication: Product used for unknown indication
     Dosage: UNK
     Route: 065
  22. PIPERACILLIN AND TAZOBACTAM [Concomitant]
     Active Substance: PIPERACILLIN SODIUM\TAZOBACTAM SODIUM
     Indication: Antibiotic therapy
     Dosage: UNK
     Route: 065
  23. VORICONAZOLE [Concomitant]
     Active Substance: VORICONAZOLE
     Indication: Pneumonia
     Dosage: UNK
     Route: 065
  24. VORICONAZOLE [Concomitant]
     Active Substance: VORICONAZOLE
     Indication: Candida infection
  25. IVABRADINE [Concomitant]
     Active Substance: IVABRADINE
     Indication: Sinus tachycardia
     Dosage: 10 MILLIGRAM, QD
     Route: 065
  26. BROMAZEPAM [Concomitant]
     Active Substance: BROMAZEPAM
     Indication: Psychiatric symptom
     Dosage: 2 MILLIGRAM, QD
     Route: 048
  27. BROMAZEPAM [Concomitant]
     Active Substance: BROMAZEPAM
     Indication: Mental disorder
     Dosage: 2 MILLIGRAM, QD
     Route: 065
  28. SODIUM CHLORIDE [Concomitant]
     Active Substance: SODIUM CHLORIDE
     Indication: Brain oedema
     Dosage: UNK
     Route: 065
  29. MIDAZOLAM [Concomitant]
     Active Substance: MIDAZOLAM
     Indication: Myoclonus
     Dosage: 15 MILLIGRAM, QH
     Route: 065
  30. MIDAZOLAM [Concomitant]
     Active Substance: MIDAZOLAM
     Indication: Sedation
  31. MELOXICAM [Concomitant]
     Active Substance: MELOXICAM
     Indication: Analgesic therapy
     Dosage: UNK
     Route: 048
  32. MELOXICAM [Concomitant]
     Active Substance: MELOXICAM
     Indication: Pain
  33. CHLORPROTHIXENE HYDROCHLORIDE [Concomitant]
     Active Substance: CHLORPROTHIXENE HYDROCHLORIDE
     Indication: Psychiatric symptom
     Dosage: 50 MILLIGRAM, QD
     Route: 065
  34. CHLORPROTHIXENE HYDROCHLORIDE [Concomitant]
     Active Substance: CHLORPROTHIXENE HYDROCHLORIDE
     Indication: Mental disorder
  35. INDOMETHACIN [Concomitant]
     Active Substance: INDOMETHACIN
     Indication: Pain
     Dosage: UNK
     Route: 065
  36. INDOMETHACIN [Concomitant]
     Active Substance: INDOMETHACIN
     Indication: Analgesic therapy

REACTIONS (30)
  - Drug interaction [Unknown]
  - Intentional product use issue [Not Recovered/Not Resolved]
  - Serotonin syndrome [Not Recovered/Not Resolved]
  - Rhabdomyolysis [Recovering/Resolving]
  - Metabolic acidosis [Unknown]
  - Apallic syndrome [Not Recovered/Not Resolved]
  - Depressed level of consciousness [Unknown]
  - Circulatory collapse [Unknown]
  - Oliguria [Unknown]
  - Restlessness [Unknown]
  - Hypertension [Unknown]
  - Dyspnoea [Unknown]
  - Hyperhidrosis [Unknown]
  - Pyrexia [Unknown]
  - Agitation [Unknown]
  - Pneumonia fungal [Unknown]
  - Tremor [Unknown]
  - Sinus tachycardia [Unknown]
  - Myoglobin blood increased [Unknown]
  - Tachycardia [Unknown]
  - Myoclonus [Unknown]
  - Arthralgia [Unknown]
  - Muscle spasms [Unknown]
  - Delirium [Unknown]
  - Mydriasis [Unknown]
  - Leukocytosis [Unknown]
  - Drug ineffective [Not Recovered/Not Resolved]
  - Condition aggravated [Unknown]
  - Pneumonia [Unknown]
  - Toxicologic test abnormal [Unknown]
